FAERS Safety Report 12386754 (Version 1)
Quarter: 2016Q2

REPORT INFORMATION
  Report Type: Spontaneous
  Country: US (occurrence: US)
  Receive Date: 20160519
  Receipt Date: 20160519
  Transmission Date: 20160815
  Serious: Yes (Other)
  Sender: FDA-Public Use
  Company Number: US-PFIZER INC-2016263002

PATIENT
  Age: 60 Year
  Sex: Female
  Weight: 77.9 kg

DRUGS (1)
  1. LEVOXYL [Suspect]
     Active Substance: LEVOTHYROXINE SODIUM
     Indication: HORMONE REPLACEMENT THERAPY
     Dosage: 137 UG, 1X/DAY
     Route: 048
     Dates: start: 2000

REACTIONS (6)
  - Nervousness [Unknown]
  - Renal impairment [Unknown]
  - Bone pain [Unknown]
  - Palpitations [Unknown]
  - Skin discolouration [Not Recovered/Not Resolved]
  - Drug intolerance [Unknown]
